FAERS Safety Report 7928798-6 (Version None)
Quarter: 2011Q4

REPORT INFORMATION
  Report Type: 
  Country: None (occurrence: None)
  Receive Date: 20111118
  Receipt Date: 20110614
  Transmission Date: 20120403
  Serious: No
  Sender: FDA-Public Use
  Company Number: US-AMGEN-USASP2011028718

PATIENT
  Age: 40 Year
  Sex: Male
  Weight: 86.621 kg

DRUGS (1)
  1. ENBREL [Suspect]
     Indication: SPONDYLITIS
     Dosage: 25 MG, 2 TIMES/WK
     Dates: start: 20051201

REACTIONS (3)
  - RED BLOOD CELLS URINE POSITIVE [None]
  - URINARY CASTS [None]
  - PROTEIN URINE PRESENT [None]
